FAERS Safety Report 6031892-0 (Version None)
Quarter: 2009Q1

REPORT INFORMATION
  Report Type: 
  Country: None (occurrence: None)
  Receive Date: 20090108
  Receipt Date: 20090107
  Transmission Date: 20090719
  Serious: Yes (Hospitalization)
  Sender: FDA-Public Use
  Company Number: FR-TEVA-182905ISR

PATIENT
  Age: 53 Year
  Sex: Female

DRUGS (5)
  1. METHOTREXATE [Suspect]
     Indication: DERMATOMYOSITIS
  2. FLUOROURACIL [Suspect]
     Indication: METASTASIS
  3. VINORELBINE [Suspect]
     Indication: METASTASIS
  4. PREDNISONE [Suspect]
     Indication: DERMATOMYOSITIS
  5. METHYLPREDNISOLONE SODIUM SUCCINATE [Suspect]
     Indication: DERMATOMYOSITIS

REACTIONS (4)
  - ABDOMINAL PAIN [None]
  - ASTHENIA [None]
  - PNEUMATOSIS INTESTINALIS [None]
  - PNEUMOPERITONEUM [None]
